FAERS Safety Report 6660874-0 (Version None)
Quarter: 2010Q1

REPORT INFORMATION
  Report Type: 
  Country: None (occurrence: None)
  Receive Date: 20100331
  Receipt Date: 20100308
  Transmission Date: 20100710
  Serious: No
  Sender: FDA-Public Use
  Company Number: US-BIOGENIDEC-2010BI008048

PATIENT
  Age: 56 Year
  Sex: Female

DRUGS (1)
  1. TYSABRI [Suspect]
     Indication: MULTIPLE SCLEROSIS
     Route: 042
     Dates: start: 20090721

REACTIONS (6)
  - BLADDER DISORDER [None]
  - DEHYDRATION [None]
  - DYSPHAGIA [None]
  - ESCHERICHIA INFECTION [None]
  - FATIGUE [None]
  - GASTROINTESTINAL DISORDER [None]
